FAERS Safety Report 21101178 (Version 1)
Quarter: 2022Q3

REPORT INFORMATION
  Report Type: Report from Study
  Country: US (occurrence: US)
  Receive Date: 20220719
  Receipt Date: 20220719
  Transmission Date: 20221027
  Serious: Yes (Other)
  Sender: FDA-Public Use
  Company Number: US-MALLINCKRODT-T202203633

PATIENT
  Sex: Female

DRUGS (6)
  1. CORTICOTROPIN [Suspect]
     Active Substance: CORTICOTROPIN
     Indication: Optic neuritis
     Dosage: UNK
     Route: 065
     Dates: start: 2017
  2. CORTICOTROPIN [Suspect]
     Active Substance: CORTICOTROPIN
     Indication: Uveitis
     Dosage: 80 UNITS
     Route: 065
  3. CORTICOTROPIN [Suspect]
     Active Substance: CORTICOTROPIN
     Dosage: 40 UNITS (DECREASED)
     Route: 065
  4. CORTICOTROPIN [Suspect]
     Active Substance: CORTICOTROPIN
     Dosage: 80 UNITS (RETURN TO)
     Route: 065
  5. CORTICOTROPIN [Suspect]
     Active Substance: CORTICOTROPIN
     Dosage: 55 UNITS EVERY THREE DAYS
     Route: 065
  6. CORTICOTROPIN [Suspect]
     Active Substance: CORTICOTROPIN
     Dosage: 50 UNITS EVERY THREE DAYS
     Route: 065

REACTIONS (10)
  - Diabetes mellitus [Not Recovered/Not Resolved]
  - Weight increased [Unknown]
  - Blindness [Not Recovered/Not Resolved]
  - Somnolence [Unknown]
  - Feeling abnormal [Not Recovered/Not Resolved]
  - Blood pressure abnormal [Unknown]
  - Migraine [Unknown]
  - Tachycardia [Not Recovered/Not Resolved]
  - Fatigue [Unknown]
  - Therapeutic product effect incomplete [Not Recovered/Not Resolved]
